FAERS Safety Report 7393645-0 (Version None)
Quarter: 2011Q1

REPORT INFORMATION
  Report Type: 
  Country: None (occurrence: None)
  Receive Date: 20110331
  Receipt Date: 20110331
  Transmission Date: 20110831
  Serious: No
  Sender: FDA-Public Use
  Company Number: None

PATIENT

DRUGS (1)
  1. PREMARIN [Suspect]
     Dates: start: 20110301, end: 20110314

REACTIONS (6)
  - MOOD SWINGS [None]
  - DEPRESSION [None]
  - DIZZINESS [None]
  - NIGHT SWEATS [None]
  - MIGRAINE [None]
  - VOMITING [None]
